FAERS Safety Report 5397217-9 (Version None)
Quarter: 2007Q3

REPORT INFORMATION
  Report Type: 
  Country: None (occurrence: None)
  Receive Date: 20070725
  Receipt Date: 20070713
  Transmission Date: 20080115
  Serious: Yes (Other)
  Sender: FDA-Public Use
  Company Number: FR-PFIZER INC-2007058708

PATIENT
  Sex: Male

DRUGS (3)
  1. LYRICA [Suspect]
     Indication: NEURALGIA
  2. ATORVASTATIN CALCIUM [Concomitant]
  3. OXYCODONE HCL [Concomitant]

REACTIONS (2)
  - DYSAESTHESIA [None]
  - SKIN BURNING SENSATION [None]
